FAERS Safety Report 8487212-5 (Version None)
Quarter: 2012Q3

REPORT INFORMATION
  Report Type: 
  Country: None (occurrence: None)
  Receive Date: 20120705
  Receipt Date: 20081222
  Transmission Date: 20120928
  Serious: Yes (Hospitalization, Other)
  Sender: FDA-Public Use
  Company Number: TR-ROCHE-1079610

PATIENT
  Sex: Female

DRUGS (1)
  1. OMALIZUMAB [Suspect]
     Indication: ASTHMA
     Route: 065
     Dates: start: 20081010, end: 20090501

REACTIONS (9)
  - COUGH [None]
  - BRONCHIAL OBSTRUCTION [None]
  - FEELING ABNORMAL [None]
  - CHEST PAIN [None]
  - RESPIRATORY DISORDER [None]
  - IMMEDIATE POST-INJECTION REACTION [None]
  - DYSPNOEA [None]
  - ASTHMA [None]
  - PYREXIA [None]
